FAERS Safety Report 7299126-7 (Version None)
Quarter: 2011Q1

REPORT INFORMATION
  Report Type: 
  Country: None (occurrence: None)
  Receive Date: 20110217
  Receipt Date: 20110208
  Transmission Date: 20110831
  Serious: Yes (Disabling, Other)
  Sender: FDA-Public Use
  Company Number: US-BAYER-2011-005972

PATIENT
  Sex: Female

DRUGS (3)
  1. NEXAVAR [Suspect]
     Indication: RENAL CELL CARCINOMA
     Dosage: 400 MG, BID
     Route: 048
     Dates: start: 20110113, end: 20110120
  2. NEXAVAR [Suspect]
     Dosage: 200 MG, BID
     Route: 048
     Dates: start: 20110207
  3. NEXAVAR [Suspect]
     Dosage: DOSE DECREASED
     Dates: start: 20110101

REACTIONS (7)
  - ERYTHEMA [None]
  - HYPERKERATOSIS [None]
  - PALMAR-PLANTAR ERYTHRODYSAESTHESIA SYNDROME [None]
  - BLISTER [None]
  - PAIN IN EXTREMITY [None]
  - SKIN ULCER [None]
  - GAIT DISTURBANCE [None]
